FAERS Safety Report 6416152-8 (Version None)
Quarter: 2009Q4

REPORT INFORMATION
  Report Type: 
  Country: None (occurrence: None)
  Receive Date: 20091027
  Receipt Date: 20091021
  Transmission Date: 20100525
  Serious: Yes (Hospitalization, Other)
  Sender: FDA-Public Use
  Company Number: FR-BRISTOL-MYERS SQUIBB COMPANY-14828016

PATIENT
  Age: 59 Year
  Sex: Female

DRUGS (3)
  1. TAXOL [Suspect]
     Dosage: 1 DF = 6MG/ML,UNK-27FEB09, AND ON 24OCT09
     Route: 042
  2. AVASTIN [Interacting]
     Indication: BREAST CANCER
     Dosage: 1 DF = 25MG/ML
     Route: 042
     Dates: start: 20081024, end: 20090429
  3. LYTOS [Interacting]
     Dates: start: 20070101

REACTIONS (2)
  - DRUG INTERACTION [None]
  - OSTEONECROSIS [None]
